FAERS Safety Report 8450390-8 (Version None)
Quarter: 2012Q2

REPORT INFORMATION
  Report Type: 
  Country: None (occurrence: None)
  Receive Date: 20120620
  Receipt Date: 20120611
  Transmission Date: 20120825
  Serious: Yes (Hospitalization)
  Sender: FDA-Public Use
  Company Number: FR-ASTRAZENECA-2012SE39298

PATIENT
  Age: 17588 Day
  Sex: Female

DRUGS (10)
  1. SINGULAIR [Suspect]
     Indication: ASTHMA
     Route: 048
     Dates: start: 20120326
  2. AIROMIR AUTOHALER [Suspect]
     Indication: ASTHMA
     Route: 055
     Dates: start: 20080101
  3. SYMBICORT [Suspect]
     Indication: ASTHMA
     Dosage: 320/9 UG PER DOSE, ONE INHALATION TWO TIMES PER DAY
     Route: 055
     Dates: start: 20090101
  4. LEVOTHYROXINE SODIUM [Concomitant]
     Route: 048
  5. PRAZEPAM [Concomitant]
     Route: 048
  6. ACETAMINOPHEN AND TRAMADOL HCL [Suspect]
     Indication: TOOTHACHE
     Route: 048
     Dates: start: 20120326, end: 20120401
  7. GUETHURAL [Concomitant]
     Route: 048
  8. DESLORATADINE [Concomitant]
     Indication: ASTHMA
     Route: 048
  9. IBUPROFEN [Suspect]
     Indication: TOOTHACHE
     Route: 048
     Dates: start: 20120326, end: 20120401
  10. HUMALOG [Concomitant]
     Indication: TYPE 1 DIABETES MELLITUS
     Dosage: 100 IU/ML PER DOSE
     Route: 058

REACTIONS (1)
  - CEREBRAL HAEMORRHAGE [None]
